FAERS Safety Report 7554901-6 (Version None)
Quarter: 2011Q2

REPORT INFORMATION
  Report Type: 
  Country: None (occurrence: None)
  Receive Date: 20110617
  Receipt Date: 20110607
  Transmission Date: 20111010
  Serious: Yes (Other)
  Sender: FDA-Public Use
  Company Number: MX-BRISTOL-MYERS SQUIBB COMPANY-15812571

PATIENT
  Age: 54 Year
  Sex: Male
  Weight: 60 kg

DRUGS (4)
  1. ISOSORBIDE MONONITRATE [Suspect]
     Indication: MYOCARDIAL ISCHAEMIA
     Dosage: 1 ORAL TABLET OF 10 MG OF ISOSORBIDE ,INTERRUPTED ON 11MAY2011.
     Route: 048
  2. ACETYL SALICYLIC ACID COMPOUND TAB [Suspect]
     Dosage: 150 MG OF ACETYL SALICYLIC ACID
     Route: 048
  3. PRAVASTATIN [Suspect]
     Indication: HYPERCHOLESTEROLAEMIA
     Route: 048
  4. CLOPIDOGREL BISULFATE [Suspect]
     Indication: THROMBOSIS PROPHYLAXIS
     Dosage: INTERRUPT ON JAN2011.
     Dates: start: 20100901

REACTIONS (1)
  - STENT PLACEMENT [None]
